FAERS Safety Report 11405567 (Version 1)
Quarter: 2015Q3

REPORT INFORMATION
  Report Type: Spontaneous
  Country: US (occurrence: US)
  Receive Date: 20150821
  Receipt Date: 20150821
  Transmission Date: 20151125
  Serious: No
  Sender: FDA-Public Use
  Company Number: US-PFIZER INC-2015274179

PATIENT
  Age: 75 Year
  Sex: Male
  Weight: 83 kg

DRUGS (4)
  1. PHENYTOIN SODIUM. [Suspect]
     Active Substance: PHENYTOIN SODIUM
     Indication: SEIZURE
     Dosage: UNK
  2. DILANTIN [Interacting]
     Active Substance: PHENYTOIN
     Indication: SEIZURE
     Dosage: UNK (IT WAS ALWAYS APPROXIMATELY 300 TO ONE TIME OR MAXIMUM OF 360 MG PER DAY)
  3. DILANTIN [Interacting]
     Active Substance: PHENYTOIN
     Dosage: 330 MG, UNK
  4. LEVAQUIN [Interacting]
     Active Substance: LEVOFLOXACIN
     Dosage: UNK
     Dates: start: 2003

REACTIONS (9)
  - Glossodynia [Unknown]
  - Drug interaction [Unknown]
  - Muscular weakness [Unknown]
  - Oral discomfort [Unknown]
  - Neuropathy peripheral [Unknown]
  - Hypoaesthesia [Unknown]
  - Paraesthesia [Unknown]
  - Drug ineffective [Unknown]
  - Anticonvulsant drug level below therapeutic [Unknown]

NARRATIVE: CASE EVENT DATE: 2000
